FAERS Safety Report 4727051-1 (Version None)
Quarter: 2005Q3

REPORT INFORMATION
  Report Type: 
  Country: None (occurrence: None)
  Receive Date: 20050726
  Receipt Date: 20050726
  Transmission Date: 20060218
  Serious: Yes (Other)
  Sender: FDA-Public Use
  Company Number: None

PATIENT
  Age: 82 Year
  Sex: Male
  Weight: 65.8 kg

DRUGS (14)
  1. TERAZOSIN [Suspect]
  2. FLUNISOLIDE [Concomitant]
  3. FORMOTEROL FUMARATE [Concomitant]
  4. TERAZOSIN HCL [Concomitant]
  5. VALSARTAN [Concomitant]
  6. TRAZODONE HCL [Concomitant]
  7. LANOXIN [Concomitant]
  8. LATANOPROST [Concomitant]
  9. IPRATROPIUM BROMIDE [Concomitant]
  10. DILTIAZEM HCL [Concomitant]
  11. OMEPRAZOLE [Concomitant]
  12. SIMVASTATIN [Concomitant]
  13. ALBUTEROL [Concomitant]
  14. BETAMETHASONE DIPROPIONATE [Concomitant]

REACTIONS (1)
  - HYPOTENSION [None]
